FAERS Safety Report 7868330-9 (Version None)
Quarter: 2011Q4

REPORT INFORMATION
  Report Type: 
  Country: None (occurrence: None)
  Receive Date: 20111028
  Receipt Date: 20111021
  Transmission Date: 20120403
  Serious: Yes (Other)
  Sender: FDA-Public Use
  Company Number: US-US-EMD SERONO, INC.-7039118

PATIENT
  Sex: Female

DRUGS (2)
  1. REBIF [Suspect]
     Indication: PRODUCT USED FOR UNKNOWN INDICATION
     Route: 058
     Dates: start: 20090501
  2. NUMEROUS UNSPECIFIED MEDICATIONS [Concomitant]

REACTIONS (2)
  - INJECTION SITE ERYTHEMA [None]
  - INTRACRANIAL ANEURYSM [None]
